FAERS Safety Report 7841039-3 (Version None)
Quarter: 2011Q4

REPORT INFORMATION
  Report Type: 
  Country: None (occurrence: None)
  Receive Date: 20111020
  Receipt Date: 20111004
  Transmission Date: 20120403
  Serious: Yes (Other)
  Sender: FDA-Public Use
  Company Number: MC201100475

PATIENT
  Age: 55 Year

DRUGS (1)
  1. CLEVIPREX [Suspect]
     Indication: HYPERTENSION
     Dosage: PERIOPERATIVELY AND POSTOPERATIVELY

REACTIONS (2)
  - CYANOSIS [None]
  - OPERATIVE HAEMORRHAGE [None]
